FAERS Safety Report 24571868 (Version 1)
Quarter: 2024Q4

REPORT INFORMATION
  Report Type: Spontaneous
  Country: US (occurrence: None)
  Receive Date: 20241031
  Receipt Date: 20241031
  Transmission Date: 20250115
  Serious: Yes (Other)
  Sender: Public
  Company Number: None

PATIENT
  Age: 74 Year
  Sex: Female

DRUGS (2)
  1. SYFOVRE [Suspect]
     Active Substance: PEGCETACOPLAN
     Indication: Dry age-related macular degeneration
     Dosage: 15 MG MONTHLY INTRAOCULAR ?
     Route: 031
     Dates: start: 20241007, end: 20241009
  2. PREDNISOLONE ACETATE [Suspect]
     Active Substance: PREDNISOLONE ACETATE

REACTIONS (6)
  - Hypotony of eye [None]
  - Blindness [None]
  - Uveitis [None]
  - Intraocular pressure increased [None]
  - Metamorphopsia [None]
  - Crying [None]

NARRATIVE: CASE EVENT DATE: 20241009
